FAERS Safety Report 12675839 (Version 1)
Quarter: 2016Q3

REPORT INFORMATION
  Report Type: Spontaneous
  Country: US (occurrence: US)
  Receive Date: 20160823
  Receipt Date: 20160823
  Transmission Date: 20161109
  Serious: No
  Sender: FDA-Public Use
  Company Number: US-BEH-2016072341

PATIENT
  Sex: Male

DRUGS (2)
  1. STIMATE [Suspect]
     Active Substance: DESMOPRESSIN ACETATE
     Indication: FACTOR VIII DEFICIENCY
     Dosage: 1.5 MG/ML, PRN
     Route: 045
     Dates: start: 20160111
  2. STIMATE [Suspect]
     Active Substance: DESMOPRESSIN ACETATE
     Indication: EPISTAXIS

REACTIONS (1)
  - Specific gravity urine abnormal [Unknown]
